FAERS Safety Report 5024554-X (Version None)
Quarter: 2006Q2

REPORT INFORMATION
  Report Type: 
  Country: None (occurrence: None)
  Receive Date: 20060608
  Receipt Date: 20060608
  Transmission Date: 20061013
  Serious: Yes (Hospitalization)
  Sender: FDA-Public Use
  Company Number: None

PATIENT
  Age: 44 Year
  Sex: Male
  Weight: 112.0385 kg

DRUGS (11)
  1. TERAZOSIN 2 MG [Suspect]
     Indication: BENIGN PROSTATIC HYPERPLASIA
     Dosage: AT BEDTIME, ORAL
     Route: 048
     Dates: start: 20060109, end: 20060202
  2. SIMVASTATIN [Concomitant]
  3. GLIPIZIDE [Concomitant]
  4. VIAGRA [Concomitant]
  5. ROSIGLITAZONE [Concomitant]
  6. CHLORPHENAMINE [Concomitant]
  7. TYLENOL W/ CODEINE NO. 3 [Concomitant]
  8. HYDROXYZINE/BU [Concomitant]
  9. METFORMIN HCL [Concomitant]
  10. METHOCARBAMOL [Concomitant]
  11. PREDNISONE [Concomitant]

REACTIONS (4)
  - DRUG HYPERSENSITIVITY [None]
  - RASH PAPULAR [None]
  - RASH PRURITIC [None]
  - URTICARIA [None]
